FAERS Safety Report 10047298 (Version 2)
Quarter: 2014Q1

REPORT INFORMATION
  Report Type: Spontaneous
  Country: US (occurrence: US)
  Receive Date: 20140331
  Receipt Date: 20140331
  Transmission Date: 20141002
  Serious: No
  Sender: FDA-Public Use
  Company Number: US-MYLANLABS-2013S1029178

PATIENT
  Age: 66 Year
  Sex: Female
  Weight: 46.27 kg

DRUGS (6)
  1. FENTANYL TRANSDERMAL SYSTEM [Suspect]
     Indication: PAIN
     Dosage: CHANGE EVERY 72 HOURS.
     Route: 062
     Dates: start: 2012
  2. FENTANYL TRANSDERMAL SYSTEM [Suspect]
     Indication: PAIN
     Dosage: CHANGE EVERY 72 HOURS.
     Route: 062
     Dates: start: 2012
  3. FENTANYL TRANSDERMAL SYSTEM [Suspect]
     Indication: PAIN
     Dosage: CHANGE EVERY 72 HOURS.
     Route: 062
     Dates: start: 2013
  4. KLONOPIN [Concomitant]
     Indication: ANXIETY
     Dosage: TAKING FOR ANXIETY AND TREMORS
  5. BENADRYL [Concomitant]
     Indication: ANXIETY
     Dosage: TAKING FOR ANXIETY AND TREMORS
  6. CLOFAZIMINE [Concomitant]
     Dosage: EXPERIMENTAL DRUG
     Dates: end: 20131215

REACTIONS (8)
  - Drug effect increased [Recovered/Resolved]
  - Drug withdrawal syndrome [Not Recovered/Not Resolved]
  - Vomiting [Not Recovered/Not Resolved]
  - Anxiety [Not Recovered/Not Resolved]
  - Tremor [Not Recovered/Not Resolved]
  - Insomnia [Not Recovered/Not Resolved]
  - Night sweats [Not Recovered/Not Resolved]
  - Wrong technique in drug usage process [Not Recovered/Not Resolved]
